FAERS Safety Report 5769279-8 (Version None)
Quarter: 2008Q2

REPORT INFORMATION
  Report Type: 
  Country: None (occurrence: None)
  Receive Date: 20080612
  Receipt Date: 20080321
  Transmission Date: 20081010
  Serious: No
  Sender: FDA-Public Use
  Company Number: US-ABBOTT-08P-163-0443864-00

PATIENT
  Sex: Female
  Weight: 53.572 kg

DRUGS (21)
  1. HUMIRA [Suspect]
     Indication: RHEUMATOID ARTHRITIS
     Route: 058
     Dates: start: 20080315
  2. HUMIRA [Suspect]
     Dates: start: 20020101, end: 20071201
  3. ACETAMINOPHEN [Concomitant]
     Indication: PAIN
     Route: 048
  4. METHOTREXATE [Concomitant]
     Indication: RHEUMATOID ARTHRITIS
  5. FLUOXETINE HYDROCHLORIDE [Concomitant]
     Indication: DEPRESSION
     Route: 048
  6. LAMOTRIGINE [Concomitant]
     Indication: BIPOLAR DISORDER
     Route: 048
  7. BUSPIRONE HYDROCHLORIDE [Concomitant]
     Indication: ANXIETY
     Route: 048
  8. TRAZODONE HCL [Concomitant]
     Indication: INSOMNIA
     Route: 048
  9. TRAZODONE HCL [Concomitant]
     Indication: DEPRESSION
  10. SALSALATE [Concomitant]
     Indication: ARTHRITIS
     Route: 048
  11. PARAFON FORT [Concomitant]
     Indication: MUSCLE RELAXANT THERAPY
     Route: 048
  12. RANITIDINE HYDROCHLORIDE [Concomitant]
     Indication: GASTROINTESTINAL DISORDER
     Route: 048
  13. SIMVASTATIN [Concomitant]
     Indication: BLOOD CHOLESTEROL INCREASED
     Route: 048
  14. CYCLOBENZAPRINE HCL [Concomitant]
     Indication: NECK PAIN
     Route: 048
  15. MELATONIN [Concomitant]
     Indication: INSOMNIA
     Route: 048
  16. SENACOT [Concomitant]
     Indication: CONSTIPATION
     Route: 048
  17. CALCIUM WITH VITAMIN D [Concomitant]
     Indication: OSTEOPOROSIS
     Route: 048
  18. ACYCLOVAIR [Concomitant]
     Indication: HERPES VIRUS INFECTION
     Route: 048
  19. GLUCOSAMINE [Concomitant]
     Indication: ARTHRITIS
     Route: 048
  20. ESTRODIOL [Concomitant]
     Indication: MENOPAUSE
     Route: 048
  21. FOLIC ACID [Concomitant]
     Indication: DRUG USE FOR UNKNOWN INDICATION
     Route: 048

REACTIONS (2)
  - NAUSEA [None]
  - PAIN [None]
